FAERS Safety Report 4563735-6 (Version None)
Quarter: 2005Q1

REPORT INFORMATION
  Report Type: 
  Country: None (occurrence: None)
  Receive Date: 20050121
  Receipt Date: 20050105
  Transmission Date: 20050727
  Serious: No
  Sender: FDA-Public Use
  Company Number: USA041183699

PATIENT
  Age: 27 Year
  Sex: Female
  Weight: 97 kg

DRUGS (1)
  1. CYMBALTA [Suspect]
     Indication: DEPRESSION
     Dosage: 30 MG DAY
     Dates: start: 20040929, end: 20041011

REACTIONS (1)
  - EYELID OEDEMA [None]
